FAERS Safety Report 18913593 (Version 5)
Quarter: 2021Q2

REPORT INFORMATION
  Report Type: Spontaneous
  Country: US (occurrence: US)
  Receive Date: 20210219
  Receipt Date: 20210430
  Transmission Date: 20210717
  Serious: Yes (Hospitalization, Other)
  Sender: FDA-Public Use
  Company Number: US-GLAXOSMITHKLINE-US2021AMR043898

PATIENT
  Age: 60 Year
  Sex: Female
  Weight: 66.22 kg

DRUGS (2)
  1. ZEJULA [Suspect]
     Active Substance: NIRAPARIB
     Dosage: 200 MG, QD
     Route: 048
  2. ZEJULA [Suspect]
     Active Substance: NIRAPARIB
     Indication: OVARIAN CANCER
     Dosage: 200 MG, QD
     Dates: start: 20210210

REACTIONS (13)
  - Intra-abdominal fluid collection [Not Recovered/Not Resolved]
  - Urine output decreased [Not Recovered/Not Resolved]
  - Nausea [Not Recovered/Not Resolved]
  - Change of bowel habit [Unknown]
  - Abdominal pain [Not Recovered/Not Resolved]
  - Recurrent cancer [Unknown]
  - Infrequent bowel movements [Not Recovered/Not Resolved]
  - Product dose omission issue [Not Recovered/Not Resolved]
  - Vomiting [Not Recovered/Not Resolved]
  - Decreased appetite [Not Recovered/Not Resolved]
  - Hospitalisation [Not Recovered/Not Resolved]
  - Mental status changes [Recovered/Resolved]
  - Body temperature increased [Unknown]

NARRATIVE: CASE EVENT DATE: 202102
